FAERS Safety Report 8983918 (Version 3)
Quarter: 2013Q1

REPORT INFORMATION
  Report Type: Spontaneous
  Country: US (occurrence: None)
  Receive Date: 20121101
  Receipt Date: 20121212
  Transmission Date: 20140127
  Serious: Yes (Other)
  Sender: FDA-Public Use
  Company Number: US-1194500

PATIENT
  Age: 80 Year
  Sex: Female
  Weight: 47.17 kg

DRUGS (4)
  1. TIMOLOL MALEATE [Suspect]
     Dosage: 1 GTT  QD  OU OPHTHALMIC
     Route: 031
     Dates: start: 20120824, end: 20120928
  2. PREDNISONE [Concomitant]
  3. FOSAMAX [Concomitant]
  4. RESTASIS [Concomitant]

REACTIONS (18)
  - Fall [None]
  - Syncope [None]
  - Loss of consciousness [None]
  - Feeling abnormal [None]
  - Lip injury [None]
  - Tooth injury [None]
  - Tooth fracture [None]
  - Nerve injury [None]
  - Arrhythmia [None]
  - Malocclusion [None]
  - Contusion [None]
  - Excoriation [None]
  - Lip injury [None]
  - Dental necrosis [None]
  - Face injury [None]
  - Amnesia [None]
  - Pain [None]
  - QRS axis abnormal [None]
